FAERS Safety Report 15346381 (Version 1)
Quarter: 2018Q3

REPORT INFORMATION
  Report Type: Spontaneous
  Country: US (occurrence: US)
  Receive Date: 20180904
  Receipt Date: 20180904
  Transmission Date: 20181010
  Serious: No
  Sender: FDA-Public Use
  Company Number: US-009507513-1808USA011528

PATIENT
  Sex: Female

DRUGS (1)
  1. BELSOMRA [Suspect]
     Active Substance: SUVOREXANT
     Dosage: ONE 10MG TABLET ONCE DAILY
     Route: 048

REACTIONS (3)
  - Myalgia [Recovered/Resolved]
  - Mobility decreased [Recovered/Resolved]
  - Pain in extremity [Recovered/Resolved]
